FAERS Safety Report 16855041 (Version 3)
Quarter: 2020Q2

REPORT INFORMATION
  Report Type: Spontaneous
  Country: JP (occurrence: JP)
  Receive Date: 20190926
  Receipt Date: 20200407
  Transmission Date: 20200713
  Serious: Yes (Other)
  Sender: FDA-Public Use
  Company Number: JP-ROCHE-2402956

PATIENT
  Age: 76 Year
  Sex: Female
  Weight: 46.5 kg

DRUGS (3)
  1. BENET [Suspect]
     Active Substance: RISEDRONATE SODIUM
     Indication: OSTEOPOROSIS
     Route: 048
     Dates: start: 20170203
  2. ELDECALCITOL [Concomitant]
     Active Substance: ELDECALCITOL
     Route: 065
     Dates: start: 201801
  3. BONVIVA [Suspect]
     Active Substance: IBANDRONATE SODIUM
     Indication: OSTEOPOROSIS
     Dosage: 3 MONTHS
     Route: 048
     Dates: start: 201903, end: 20190614

REACTIONS (4)
  - Tooth extraction [Recovering/Resolving]
  - Dental necrosis [Recovered/Resolved with Sequelae]
  - Gingivitis [Recovering/Resolving]
  - Haemorrhage [Recovering/Resolving]
